FAERS Safety Report 6690029-5 (Version None)
Quarter: 2010Q2

REPORT INFORMATION
  Report Type: 
  Country: None (occurrence: None)
  Receive Date: 20100421
  Receipt Date: 20100412
  Transmission Date: 20101027
  Serious: Yes (Other)
  Sender: FDA-Public Use
  Company Number: PHHY2010JP23760

PATIENT

DRUGS (1)
  1. ZOMETA [Suspect]
     Indication: METASTASES TO BONE
     Route: 042

REACTIONS (5)
  - METASTASES TO BONE [None]
  - OPEN WOUND [None]
  - OSTEONECROSIS [None]
  - RADIOTHERAPY [None]
  - TOOTH LOSS [None]
